FAERS Safety Report 6091828-3 (Version None)
Quarter: 2009Q1

REPORT INFORMATION
  Report Type: 
  Country: None (occurrence: None)
  Receive Date: 20090225
  Receipt Date: 20080801
  Transmission Date: 20090719
  Serious: No
  Sender: FDA-Public Use
  Company Number: A0739086A

PATIENT
  Age: 84 Year
  Sex: Female

DRUGS (4)
  1. VALTREX [Suspect]
     Dosage: 1G THREE TIMES PER DAY
     Route: 048
     Dates: start: 20080714, end: 20080721
  2. ASCORBIC ACID [Concomitant]
  3. CALCIUM [Concomitant]
  4. VITAMIN E [Concomitant]

REACTIONS (4)
  - DERMATITIS [None]
  - ILL-DEFINED DISORDER [None]
  - PRURITUS [None]
  - SKIN ULCER [None]
